FAERS Safety Report 8859666 (Version 1)
Quarter: 2012Q4

REPORT INFORMATION
  Report Type: 
  Country: PH (occurrence: PH)
  Receive Date: 20121025
  Receipt Date: 20121025
  Transmission Date: 20130627
  Serious: Yes (Death, Hospitalization)
  Sender: FDA-Public Use
  Company Number: PH-BAXTER-2012BAX021055

PATIENT
  Sex: Male

DRUGS (1)
  1. DIANEAL PD2 WITH 1.5% DEXTROSE [Suspect]
     Indication: CAPD
     Dates: start: 20120915

REACTIONS (4)
  - Multi-organ failure [Fatal]
  - Cyanosis [Unknown]
  - Oedema [Unknown]
  - Dyspnoea [Unknown]
